FAERS Safety Report 5848272-0 (Version None)
Quarter: 2008Q3

REPORT INFORMATION
  Report Type: 
  Country: None (occurrence: None)
  Receive Date: 20080818
  Receipt Date: 20080813
  Transmission Date: 20090109
  Serious: Yes (Hospitalization)
  Sender: FDA-Public Use
  Company Number: US-BRISTOL-MYERS SQUIBB COMPANY-14301931

PATIENT
  Age: 62 Year
  Sex: Male
  Weight: 94 kg

DRUGS (11)
  1. CISPLATIN [Suspect]
     Indication: NON-SMALL CELL LUNG CANCER
     Route: 042
     Dates: start: 20071022, end: 20071022
  2. ETOPOSIDE [Suspect]
     Indication: NON-SMALL CELL LUNG CANCER
     Route: 042
     Dates: start: 20071022, end: 20071022
  3. NEUPOGEN [Suspect]
     Indication: CHEMOTHERAPY
     Dates: start: 20071025, end: 20071025
  4. GRANISETRON HCL [Concomitant]
     Dates: start: 20071029
  5. HYDROCODONE BITARTRATE [Concomitant]
     Dates: start: 20071012
  6. METHYLPREDNISOLONE [Concomitant]
     Dates: start: 20071031
  7. BENZONATATE [Concomitant]
     Dates: start: 20071105
  8. ESCITALOPRAM [Concomitant]
     Dates: start: 20071108, end: 20071111
  9. PROCHLORPERAZINE EDISYLATE [Concomitant]
     Dates: start: 20071022
  10. RADIATION THERAPY [Concomitant]
     Dates: start: 20071022
  11. LORAZEPAM [Concomitant]
     Route: 042
     Dates: start: 20071022

REACTIONS (13)
  - BLOOD POTASSIUM DECREASED [None]
  - CATHETER RELATED INFECTION [None]
  - DEEP VEIN THROMBOSIS [None]
  - DEHYDRATION [None]
  - HAEMOGLOBIN DECREASED [None]
  - NAUSEA [None]
  - PLATELET COUNT DECREASED [None]
  - PLEURAL EFFUSION [None]
  - PULMONARY CONGESTION [None]
  - PYREXIA [None]
  - SEPSIS [None]
  - VOMITING [None]
  - WHITE BLOOD CELL COUNT DECREASED [None]
